APPROVED DRUG PRODUCT: OPTIMARK
Active Ingredient: GADOVERSETAMIDE
Strength: 16.545GM/50ML (330.9MG/ML)
Dosage Form/Route: INJECTABLE;INJECTION
Application: N020975 | Product #001
Applicant: LIEBEL-FLARSHEIM CO LLC
Approved: Dec 8, 1999 | RLD: Yes | RS: No | Type: DISCN